FAERS Safety Report 15785231 (Version 1)
Quarter: 2018Q4

REPORT INFORMATION
  Report Type: Spontaneous
  Country: US (occurrence: US)
  Receive Date: 20181228
  Receipt Date: 20181228
  Transmission Date: 20190205
  Serious: Yes (Death)
  Sender: FDA-Public Use
  Company Number: None

PATIENT
  Sex: Male

DRUGS (1)
  1. ATROPINE OPHTHALMIC DROPS [Suspect]
     Active Substance: ATROPINE

REACTIONS (7)
  - Transcription medication error [None]
  - Product administration error [None]
  - Skin laceration [None]
  - Hallucination, visual [None]
  - Fall [None]
  - Product prescribing error [None]
  - Hallucination, auditory [None]

NARRATIVE: CASE EVENT DATE: 2017
